FAERS Safety Report 8130058-8 (Version None)
Quarter: 2012Q1

REPORT INFORMATION
  Report Type: 
  Country: None (occurrence: None)
  Receive Date: 20120210
  Receipt Date: 20120206
  Transmission Date: 20120608
  Serious: Yes (Hospitalization, Disabling, Other)
  Sender: FDA-Public Use
  Company Number: US-TEVA-282355USA

PATIENT
  Sex: Male
  Weight: 100 kg

DRUGS (2)
  1. PROPOFOL [Suspect]
     Indication: SEDATION
  2. PROPOFOL [Suspect]
     Indication: ANAESTHESIA
     Dosage: 20 ML VIAL
     Dates: start: 20091105, end: 20091105

REACTIONS (3)
  - HYPOTENSION [None]
  - PRODUCT CONTAMINATION MICROBIAL [None]
  - BRAIN INJURY [None]
